FAERS Safety Report 10053308 (Version 1)
Quarter: 2014Q2

REPORT INFORMATION
  Report Type: Spontaneous
  Country: US (occurrence: US)
  Receive Date: 20140402
  Receipt Date: 20140402
  Transmission Date: 20141212
  Serious: Yes (Other)
  Sender: FDA-Public Use
  Company Number: US-MALLINCKRODT-T201400332

PATIENT
  Age: 24 Year
  Sex: Female

DRUGS (1)
  1. OPTIRAY [Suspect]
     Indication: COMPUTERISED TOMOGRAM
     Dosage: 125 ML, SINGLE, PRE-FILLED SYRINGE
     Route: 042
     Dates: start: 20131028, end: 20131028

REACTIONS (2)
  - Chest discomfort [Unknown]
  - Throat tightness [Unknown]
